FAERS Safety Report 11372827 (Version 2)
Quarter: 2017Q1

REPORT INFORMATION
  Report Type: Spontaneous
  Country: US (occurrence: US)
  Receive Date: 20150811
  Receipt Date: 20170106
  Transmission Date: 20170428
  Serious: No
  Sender: FDA-Public Use
  Company Number: US-ELI_LILLY_AND_COMPANY-US201110008064

PATIENT
  Sex: Male

DRUGS (3)
  1. CIALIS [Suspect]
     Active Substance: TADALAFIL
     Indication: ERECTILE DYSFUNCTION
     Dosage: 2.5 MG, PRN
     Route: 065
     Dates: start: 201107
  2. ANDROGEL [Concomitant]
     Active Substance: TESTOSTERONE
     Indication: BLOOD TESTOSTERONE DECREASED
     Dosage: UNK, UNKNOWN
     Route: 065
  3. CIALIS [Suspect]
     Active Substance: TADALAFIL
     Dosage: 5 MG, PRN
     Route: 065

REACTIONS (7)
  - Insomnia [Recovered/Resolved]
  - Back pain [Recovered/Resolved]
  - Inappropriate schedule of drug administration [Unknown]
  - Agitation [Unknown]
  - Pain in extremity [Recovered/Resolved]
  - Therapeutic response decreased [Unknown]
  - Muscle strain [Recovered/Resolved]
